FAERS Safety Report 17959760 (Version 1)
Quarter: 2020Q2

REPORT INFORMATION
  Report Type: Report from Study
  Country: IT (occurrence: IT)
  Receive Date: 20200630
  Receipt Date: 20200630
  Transmission Date: 20200714
  Serious: Yes (Hospitalization)
  Sender: FDA-Public Use
  Company Number: IT-ACCORD-187684

PATIENT
  Age: 73 Year
  Sex: Male

DRUGS (9)
  1. LASIX [Concomitant]
     Active Substance: FUROSEMIDE
     Dosage: STRENGTH: 25 MG
  2. CLOPIDOGREL [Suspect]
     Active Substance: CLOPIDOGREL BISULFATE
     Indication: ISCHAEMIC HEART DISEASE PROPHYLAXIS
     Route: 048
     Dates: start: 20200101, end: 20200403
  3. ACETYLSALICYLIC ACID [Suspect]
     Active Substance: ASPIRIN
     Indication: ISCHAEMIC HEART DISEASE PROPHYLAXIS
     Route: 048
     Dates: start: 20200101, end: 20200403
  4. BISOPROLOL [Concomitant]
     Active Substance: BISOPROLOL
  5. OMNIC [Concomitant]
     Active Substance: TAMSULOSIN HYDROCHLORIDE
     Dosage: STRENGTH:0.4 MG
  6. METFORMIN [Concomitant]
     Active Substance: METFORMIN HYDROCHLORIDE
  7. TORVAST [Concomitant]
     Active Substance: ATORVASTATIN
     Dosage: STRENGTH: 80 MG
  8. PANTORC [Concomitant]
     Active Substance: PANTOPRAZOLE SODIUM
  9. RAMIPRIL. [Concomitant]
     Active Substance: RAMIPRIL

REACTIONS (1)
  - Microcytic anaemia [Unknown]

NARRATIVE: CASE EVENT DATE: 20200403
